FAERS Safety Report 19984509 (Version 1)
Quarter: 2021Q4

REPORT INFORMATION
  Report Type: Spontaneous
  Country: US (occurrence: US)
  Receive Date: 20211020
  Receipt Date: 20211020
  Transmission Date: 20220303
  Serious: Yes (Hospitalization, Disabling)
  Sender: FDA-Public Use
  Company Number: None

PATIENT
  Age: 31 Year
  Sex: Male
  Weight: 102.06 kg

DRUGS (1)
  1. SUBOXONE [Suspect]
     Active Substance: BUPRENORPHINE HYDROCHLORIDE\NALOXONE HYDROCHLORIDE
     Indication: Drug abuse
     Dosage: ?          QUANTITY:1 DF DOSAGE FORM;
     Route: 060
     Dates: start: 2016

REACTIONS (8)
  - Anxiety [None]
  - Eye pruritus [None]
  - Retching [None]
  - Tremor [None]
  - Nausea [None]
  - Headache [None]
  - Fatigue [None]
  - Mouth haemorrhage [None]

NARRATIVE: CASE EVENT DATE: 20211020
